FAERS Safety Report 14965086 (Version 4)
Quarter: 2018Q3

REPORT INFORMATION
  Report Type: Spontaneous
  Country: FR (occurrence: FR)
  Receive Date: 20180601
  Receipt Date: 20180903
  Transmission Date: 20181010
  Serious: Yes (Death)
  Sender: FDA-Public Use
  Company Number: FR-B.I. PHARMACEUTICALS,INC./RIDGEFIELD-2018-BI-028887

PATIENT
  Age: 85 Year
  Sex: Female

DRUGS (1)
  1. PRADAXA [Suspect]
     Active Substance: DABIGATRAN ETEXILATE MESYLATE
     Indication: ATRIAL FIBRILLATION
     Dosage: NON RENSEIGNEE
     Route: 048
     Dates: end: 20180110

REACTIONS (2)
  - Gastrointestinal haemorrhage [Fatal]
  - Epistaxis [Fatal]

NARRATIVE: CASE EVENT DATE: 20180110
